FAERS Safety Report 10430540 (Version 1)
Quarter: 2014Q3

REPORT INFORMATION
  Report Type: Spontaneous
  Country: US (occurrence: None)
  Receive Date: 20140903
  Receipt Date: 20140903
  Transmission Date: 20150326
  Serious: No
  Sender: FDA-Public Use
  Company Number: None

PATIENT
  Age: 54 Year
  Sex: Female

DRUGS (2)
  1. ESTRADIOL. [Concomitant]
     Active Substance: ESTRADIOL
  2. NITROFURANTOIN. [Suspect]
     Active Substance: NITROFURANTOIN
     Dates: start: 20100920, end: 20130926

REACTIONS (4)
  - Fatigue [None]
  - Drug-induced liver injury [None]
  - Malaise [None]
  - Hepatic fibrosis [None]

NARRATIVE: CASE EVENT DATE: 20130924
